FAERS Safety Report 4536829-9 (Version None)
Quarter: 2004Q4

REPORT INFORMATION
  Report Type: 
  Country: None (occurrence: None)
  Receive Date: 20041220
  Receipt Date: 20041206
  Transmission Date: 20050328
  Serious: Yes (Hospitalization, Other)
  Sender: FDA-Public Use
  Company Number: 2004091088

PATIENT
  Sex: Male
  Weight: 74 kg

DRUGS (4)
  1. TAHOR (ATORVASTATIN) [Suspect]
     Indication: HYPERCHOLESTEROLAEMIA
     Dosage: 10 MG (10 MG, DAILY)
     Dates: start: 19970101, end: 20030501
  2. CELIPROLOL (CELIPROLOL) [Concomitant]
  3. ACETYLSALICYLIC ACID SRT [Concomitant]
  4. AMLODIPINE [Concomitant]

REACTIONS (5)
  - BLOOD CREATINE PHOSPHOKINASE INCREASED [None]
  - CHEST DISCOMFORT [None]
  - ILL-DEFINED DISORDER [None]
  - MYALGIA [None]
  - TENDON RUPTURE [None]
